FAERS Safety Report 5840253-6 (Version None)
Quarter: 2008Q3

REPORT INFORMATION
  Report Type: 
  Country: None (occurrence: None)
  Receive Date: 20080730
  Receipt Date: 20080604
  Transmission Date: 20090109
  Serious: No
  Sender: FDA-Public Use
  Company Number: 2008-US-000307

PATIENT
  Age: 12 Year
  Sex: Male
  Weight: 32.3 kg

DRUGS (1)
  1. INCRELEX [Suspect]
     Dosage: 1.7 MG, BID, SUBCUTANEOUS ; 2.5 MG, BID, SUBCUTANEOUS ; 3.5 MG, BID, SUBCUTANEOUS
     Route: 058
     Dates: end: 20080502

REACTIONS (3)
  - INJECTION SITE ERYTHEMA [None]
  - INJECTION SITE PRURITUS [None]
  - INJECTION SITE URTICARIA [None]
